FAERS Safety Report 4895875-6 (Version None)
Quarter: 2005Q4

REPORT INFORMATION
  Report Type: 
  Country: None (occurrence: None)
  Receive Date: 20051220
  Receipt Date: 20050824
  Transmission Date: 20060501
  Serious: Yes (Other)
  Sender: FDA-Public Use
  Company Number: 413522

PATIENT
  Age: 65 Year
  Sex: Female
  Weight: 73.5 kg

DRUGS (1)
  1. BONIVA [Suspect]
     Indication: OSTEOPOROSIS
     Dates: start: 20050808, end: 20050811

REACTIONS (1)
  - DIARRHOEA [None]
